FAERS Safety Report 11520824 (Version 1)
Quarter: 2015Q3

REPORT INFORMATION
  Report Type: Spontaneous
  Country: US (occurrence: None)
  Receive Date: 20150917
  Receipt Date: 20150917
  Transmission Date: 20151125
  Serious: No
  Sender: FDA-Public Use
  Company Number: None

PATIENT

DRUGS (2)
  1. ENOXAPARIN 60 MG TEVA [Suspect]
     Active Substance: ENOXAPARIN
     Dates: start: 20150731, end: 20150915
  2. ENOXAPARIN 120 MG TEVA [Suspect]
     Active Substance: ENOXAPARIN
     Dates: start: 20150731, end: 20150915

REACTIONS (3)
  - Product label issue [None]
  - Product quality issue [None]
  - Product expiration date issue [None]

NARRATIVE: CASE EVENT DATE: 20150916
